FAERS Safety Report 5746103-0 (Version None)
Quarter: 2008Q2

REPORT INFORMATION
  Report Type: 
  Country: None (occurrence: None)
  Receive Date: 20080520
  Receipt Date: 20080508
  Transmission Date: 20081010
  Serious: Yes (Other)
  Sender: FDA-Public Use
  Company Number: GXKR2008GB04282

PATIENT
  Age: 58 Year
  Sex: Female
  Weight: 68 kg

DRUGS (3)
  1. SIMVASTATIN [Suspect]
     Indication: HYPERCHOLESTEROLAEMIA
     Dosage: 1 DF, QD, ORAL
     Route: 048
     Dates: start: 20071031, end: 20080430
  2. CODEINE PHOSPHATE (CODEINE PHOSPHATE) [Concomitant]
  3. VENLAFAXINE HCL [Concomitant]

REACTIONS (1)
  - HALLUCINATION, VISUAL [None]
